FAERS Safety Report 24660138 (Version 1)
Quarter: 2024Q4

REPORT INFORMATION
  Report Type: Spontaneous
  Country: US (occurrence: None)
  Receive Date: 20241124
  Receipt Date: 20241124
  Transmission Date: 20250115
  Serious: Yes (Hospitalization)
  Sender: Public
  Company Number: None

PATIENT
  Age: 40 Year
  Sex: Female

DRUGS (1)
  1. HAILEY 1.5/30 [Suspect]
     Active Substance: ETHINYL ESTRADIOL\NORETHINDRONE ACETATE
     Indication: Vaginal haemorrhage
     Dosage: 1 MG DAILY ORAL
     Route: 048

REACTIONS (4)
  - Muscle spasms [None]
  - Acne [None]
  - Vaginal haemorrhage [None]
  - Pain [None]

NARRATIVE: CASE EVENT DATE: 20241123
